FAERS Safety Report 6377254-8 (Version None)
Quarter: 2009Q3

REPORT INFORMATION
  Report Type: 
  Country: None (occurrence: None)
  Receive Date: 20090925
  Receipt Date: 20090901
  Transmission Date: 20100115
  Serious: Yes (Other)
  Sender: FDA-Public Use
  Company Number: B0594991A

PATIENT
  Age: 76 Year
  Sex: Female

DRUGS (12)
  1. KREDEX [Suspect]
     Indication: DRUG USE FOR UNKNOWN INDICATION
     Route: 065
  2. ADALAT [Concomitant]
  3. ARICEPT [Concomitant]
  4. IMOVANE [Concomitant]
  5. MAREVAN [Concomitant]
  6. PREDNISOLONE [Concomitant]
  7. SELOZOK [Concomitant]
  8. SIMVASTATIN [Concomitant]
  9. LEVOTHYROXINE SODIUM [Concomitant]
  10. TRIATEC [Concomitant]
  11. VALLERGAN [Concomitant]
  12. TRIMEPRAZINE TAB [Concomitant]

REACTIONS (1)
  - MYOCLONUS [None]
